FAERS Safety Report 5935284-1 (Version None)
Quarter: 2008Q4

REPORT INFORMATION
  Report Type: 
  Country: None (occurrence: None)
  Receive Date: 20081030
  Receipt Date: 20081022
  Transmission Date: 20090506
  Serious: Yes (Other)
  Sender: FDA-Public Use
  Company Number: JP-BAXTER-2008BH010914

PATIENT
  Age: 17 Year
  Sex: Male

DRUGS (7)
  1. ENDOXAN BAXTER [Suspect]
     Indication: CHLOROMA
     Dosage: DOSE UNIT:UNKNOWN
     Route: 065
  2. ETOPOSIDE [Suspect]
     Indication: CHLOROMA
     Dosage: DOSE UNIT:UNKNOWN
     Route: 065
  3. CYTARABINE [Suspect]
     Indication: CHLOROMA
     Dosage: DOSE UNIT:UNKNOWN
     Route: 065
  4. DAUNORUBICIN HCL [Suspect]
     Indication: CHLOROMA
     Dosage: DOSE UNIT:UNKNOWN
     Route: 065
  5. ENOCITABINE [Suspect]
     Indication: CHLOROMA
     Dosage: DOSE UNIT:UNKNOWN
     Route: 065
  6. MITOXANTRONE [Suspect]
     Indication: CHLOROMA
     Dosage: DOSE UNIT:UNKNOWN
     Route: 065
  7. TOTAL BODY IRRADIATION [Suspect]
     Indication: CHLOROMA
     Dosage: DOSE UNIT:UNKNOWN
     Route: 065

REACTIONS (3)
  - CARDIOMYOPATHY [None]
  - THROMBOTIC MICROANGIOPATHY [None]
  - VENOOCCLUSIVE LIVER DISEASE [None]
